FAERS Safety Report 6976296-9 (Version None)
Quarter: 2010Q3

REPORT INFORMATION
  Report Type: 
  Country: None (occurrence: None)
  Receive Date: 20100910
  Receipt Date: 20100901
  Transmission Date: 20110219
  Serious: Yes (Other)
  Sender: FDA-Public Use
  Company Number: DE-AMGEN-QUU435610

PATIENT
  Sex: Female

DRUGS (1)
  1. NPLATE [Suspect]
     Indication: IDIOPATHIC THROMBOCYTOPENIC PURPURA

REACTIONS (7)
  - MENORRHAGIA [None]
  - MOUTH HAEMORRHAGE [None]
  - NEUTRALISING ANTIBODIES [None]
  - PETECHIAE [None]
  - PLATELET COUNT DECREASED [None]
  - SPLENECTOMY [None]
  - THERAPEUTIC RESPONSE DECREASED [None]
